FAERS Safety Report 4898742-7 (Version None)
Quarter: 2006Q1

REPORT INFORMATION
  Report Type: 
  Country: None (occurrence: None)
  Receive Date: 20060131
  Receipt Date: 20060119
  Transmission Date: 20060701
  Serious: Yes (Other)
  Sender: FDA-Public Use
  Company Number: 163-20785-06010006

PATIENT
  Age: 44 Year
  Sex: Female

DRUGS (1)
  1. THALOMID [Suspect]
     Indication: MULTIPLE MYELOMA
     Dosage: 200 MG, DAILY, ORAL
     Route: 048
     Dates: start: 20040805, end: 20051201

REACTIONS (2)
  - BLOOD HUMAN CHORIONIC GONADOTROPIN INCREASED [None]
  - PREGNANCY TEST POSITIVE [None]
